FAERS Safety Report 17269904 (Version 1)
Quarter: 2020Q1

REPORT INFORMATION
  Report Type: Spontaneous
  Country: CO (occurrence: CO)
  Receive Date: 20200114
  Receipt Date: 20200114
  Transmission Date: 20200409
  Serious: Yes (Hospitalization, Other)
  Sender: FDA-Public Use
  Company Number: CO-PFIZER INC-2020015945

PATIENT
  Age: 70 Year
  Sex: Female

DRUGS (1)
  1. SUTENT [Suspect]
     Active Substance: SUNITINIB MALATE
     Indication: GASTROINTESTINAL STROMAL TUMOUR
     Dosage: 50 MG, UNK
     Dates: start: 2018

REACTIONS (8)
  - Vomiting [Recovered/Resolved]
  - Nausea [Recovered/Resolved]
  - Colitis [Unknown]
  - Urinary tract infection [Not Recovered/Not Resolved]
  - Feeling abnormal [Unknown]
  - Hypertension [Unknown]
  - Diarrhoea [Unknown]
  - Headache [Unknown]
